FAERS Safety Report 13227888 (Version 1)
Quarter: 2017Q1

REPORT INFORMATION
  Report Type: Report from Study
  Country: US (occurrence: FR)
  Receive Date: 20170213
  Receipt Date: 20170213
  Transmission Date: 20170428
  Serious: Yes (Death, Hospitalization)
  Sender: FDA-Public Use
  Company Number: US-SUNOVION-2017SUN000570

PATIENT

DRUGS (3)
  1. CANDESARTAN + HIDROCLOROTIAZIDA ACTAVIS [Suspect]
     Active Substance: CANDESARTAN CILEXETIL\HYDROCHLOROTHIAZIDE
     Indication: HYPERTENSION
     Dosage: 8/12.5
     Route: 065
     Dates: start: 2013, end: 20160613
  2. INDACATEROL AND GLYCOPYRROLATE [Suspect]
     Active Substance: GLYCOPYRROLATE\INDACATEROL MALEATE
     Indication: CHRONIC OBSTRUCTIVE PULMONARY DISEASE
     Dosage: UNK
     Route: 065
     Dates: start: 20160322
  3. OROKEN [Suspect]
     Active Substance: CEFIXIME
     Indication: URINARY TRACT INFECTION
     Dosage: UNK
     Route: 048

REACTIONS (4)
  - Prerenal failure [Unknown]
  - Prostate induration [Unknown]
  - Bladder cancer [Unknown]
  - Prostate cancer [Fatal]

NARRATIVE: CASE EVENT DATE: 20160713
